FAERS Safety Report 18988398 (Version 1)
Quarter: 2021Q1

REPORT INFORMATION
  Report Type: Spontaneous
  Country: ES (occurrence: ES)
  Receive Date: 20210309
  Receipt Date: 20210309
  Transmission Date: 20210420
  Serious: Yes (Other)
  Sender: FDA-Public Use
  Company Number: NVSC2021ES048865

PATIENT
  Age: 59 Year
  Sex: Male

DRUGS (1)
  1. COSENTYX [Suspect]
     Active Substance: SECUKINUMAB
     Indication: PSORIATIC ARTHROPATHY
     Dosage: 300 MG
     Route: 058
     Dates: start: 20161201

REACTIONS (3)
  - Aphthous ulcer [Recovered/Resolved]
  - Abnormal loss of weight [Recovering/Resolving]
  - Skin papilloma [Recovered/Resolved]

NARRATIVE: CASE EVENT DATE: 20190209
